FAERS Safety Report 4375208-4 (Version None)
Quarter: 2004Q2

REPORT INFORMATION
  Report Type: 
  Country: None (occurrence: None)
  Receive Date: 20040607
  Receipt Date: 20030808
  Transmission Date: 20050107
  Serious: Yes (Hospitalization)
  Sender: FDA-Public Use
  Company Number: 344527

PATIENT
  Age: 19 Year
  Sex: Male
  Weight: 83.9 kg

DRUGS (2)
  1. ACCUTANE [Suspect]
     Indication: DRUG USE FOR UNKNOWN INDICATION
     Dosage: 40 MG 2 PER DAY ORAL
     Route: 048
     Dates: start: 20030515, end: 20030808
  2. ANTIBIOTICS UNSPECIFIED CONTINUNG (ANTIBIOTIC NOS) [Concomitant]

REACTIONS (5)
  - ADVERSE EVENT [None]
  - DYSPHAGIA [None]
  - NASAL OEDEMA [None]
  - OEDEMA MUCOSAL [None]
  - TONSILLAR DISORDER [None]
